FAERS Safety Report 6569651-2 (Version None)
Quarter: 2010Q1

REPORT INFORMATION
  Report Type: 
  Country: None (occurrence: None)
  Receive Date: 20100204
  Receipt Date: 20100126
  Transmission Date: 20100710
  Serious: Yes (Other)
  Sender: FDA-Public Use
  Company Number: US-ASTRAZENECA-2010SE03456

PATIENT
  Age: 50 Year
  Sex: Female
  Weight: 108.9 kg

DRUGS (12)
  1. SEROQUEL XR [Suspect]
     Indication: BIPOLAR I DISORDER
     Route: 048
     Dates: start: 20090101
  2. SEROQUEL XR [Suspect]
     Route: 048
  3. SEROQUEL XR [Suspect]
     Route: 048
  4. SEROQUEL XR [Suspect]
     Route: 048
  5. LEVOTHYROXINE SODIUM [Concomitant]
     Indication: HYPOTHYROIDISM
  6. LISINOPRIL [Concomitant]
     Indication: BLOOD PRESSURE
  7. NAPROXEN [Concomitant]
     Indication: NECK PAIN
  8. NAPROXEN [Concomitant]
     Indication: BACK PAIN
  9. WELLBUTRIN [Concomitant]
     Indication: BIPOLAR I DISORDER
  10. GLUCOSAMINE [Concomitant]
  11. LOVAZA [Concomitant]
  12. MULTI-VITAMIN [Concomitant]

REACTIONS (6)
  - ABASIA [None]
  - ATTENTION DEFICIT/HYPERACTIVITY DISORDER [None]
  - DIZZINESS [None]
  - FALL [None]
  - IMPAIRED DRIVING ABILITY [None]
  - SOMNOLENCE [None]
